FAERS Safety Report 18457745 (Version 1)
Quarter: 2020Q4

REPORT INFORMATION
  Report Type: Spontaneous
  Country: US (occurrence: US)
  Receive Date: 20201103
  Receipt Date: 20201103
  Transmission Date: 20210114
  Serious: Yes (Other)
  Sender: FDA-Public Use
  Company Number: US-ENDO PHARMACEUTICALS INC-2020-006939

PATIENT
  Age: 59 Year
  Sex: Male
  Weight: 108.8 kg

DRUGS (2)
  1. ROBAXIN [Suspect]
     Active Substance: METHOCARBAMOL
     Indication: PAIN
     Dosage: 150 MG, UNKNOWN
     Route: 048
     Dates: start: 20201001
  2. DOFETILIDE. [Suspect]
     Active Substance: DOFETILIDE
     Indication: ATRIAL FIBRILLATION
     Dosage: 125 MCG, BID
     Route: 048

REACTIONS (1)
  - Atrial fibrillation [Not Recovered/Not Resolved]

NARRATIVE: CASE EVENT DATE: 20201014
